FAERS Safety Report 7679525-1 (Version None)
Quarter: 2011Q3

REPORT INFORMATION
  Report Type: 
  Country: None (occurrence: None)
  Receive Date: 20110812
  Receipt Date: 20110801
  Transmission Date: 20111222
  Serious: Yes (Hospitalization)
  Sender: FDA-Public Use
  Company Number: PL-BRISTOL-MYERS SQUIBB COMPANY-15938194

PATIENT
  Age: 75 Year
  Sex: Male

DRUGS (3)
  1. PROMETHAZINE [Interacting]
  2. HALOPERIDOL [Interacting]
  3. TRAZODONE HCL [Suspect]
     Dosage: CR.INTIALLY-37.5MG/DAY

REACTIONS (2)
  - SEROTONIN SYNDROME [None]
  - DRUG INTERACTION [None]
